FAERS Safety Report 9370907 (Version 1)
Quarter: 2013Q2

REPORT INFORMATION
  Report Type: Spontaneous
  Country: US (occurrence: US)
  Receive Date: 20130627
  Receipt Date: 20130627
  Transmission Date: 20140414
  Serious: Yes (Other)
  Sender: FDA-Public Use
  Company Number: US-AMGEN-USASP2013044099

PATIENT
  Age: 46 Year
  Sex: Female

DRUGS (3)
  1. ENBREL [Suspect]
     Indication: RHEUMATOID ARTHRITIS
     Dosage: 50 MG, QWK
     Route: 065
     Dates: start: 20021104
  2. REMICADE [Suspect]
     Dosage: UNK
  3. HUMIRA [Concomitant]
     Dosage: UNK

REACTIONS (12)
  - Systemic lupus erythematosus [Not Recovered/Not Resolved]
  - Loss of consciousness [Recovered/Resolved]
  - Adrenal disorder [Recovered/Resolved]
  - Addison^s disease [Not Recovered/Not Resolved]
  - Cardiac disorder [Not Recovered/Not Resolved]
  - Attention deficit/hyperactivity disorder [Recovered/Resolved]
  - Dyspnoea [Recovered/Resolved]
  - Head injury [Recovered/Resolved]
  - Back pain [Not Recovered/Not Resolved]
  - Local swelling [Recovered/Resolved]
  - Memory impairment [Not Recovered/Not Resolved]
  - Chest pain [Recovered/Resolved]
